FAERS Safety Report 26119242 (Version 2)
Quarter: 2025Q4

REPORT INFORMATION
  Report Type: Spontaneous
  Country: US (occurrence: US)
  Receive Date: 20251204
  Receipt Date: 20251216
  Transmission Date: 20260118
  Serious: Yes (Hospitalization, Other)
  Sender: Kenvue
  Company Number: None

PATIENT
  Age: 42 Year
  Sex: Male

DRUGS (1)
  1. LOPERAMIDE HYDROCHLORIDE [Suspect]
     Active Substance: LOPERAMIDE HYDROCHLORIDE
     Indication: Drug withdrawal syndrome
     Dosage: 100 TO 200 MG OF LOPERAMIDE DAILY
     Route: 065

REACTIONS (13)
  - Ventricular tachycardia [Recovered/Resolved]
  - Left ventricular hypertrophy [Unknown]
  - Drug use disorder [Unknown]
  - Seizure [Recovered/Resolved]
  - Ventricular fibrillation [Recovered/Resolved]
  - Product use in unapproved indication [Unknown]
  - Electrocardiogram T wave abnormal [Unknown]
  - Tardive dyskinesia [Unknown]
  - Urinary incontinence [Unknown]
  - Withdrawal syndrome [Unknown]
  - Electrocardiogram QRS complex prolonged [Recovered/Resolved]
  - Electrocardiogram QT prolonged [Recovered/Resolved]
  - Overdose [Unknown]
